FAERS Safety Report 7178682-3 (Version None)
Quarter: 2010Q4

REPORT INFORMATION
  Report Type: 
  Country: None (occurrence: None)
  Receive Date: 20101221
  Receipt Date: 20101214
  Transmission Date: 20110411
  Serious: No
  Sender: FDA-Public Use
  Company Number: US-BIOGENIDEC-2010BI043965

PATIENT
  Age: 52 Year
  Sex: Female

DRUGS (4)
  1. TYSABRI [Suspect]
     Indication: MULTIPLE SCLEROSIS
     Route: 042
     Dates: start: 20070110, end: 20070626
  2. TYSABRI [Suspect]
     Route: 042
     Dates: start: 20100309
  3. AVONEX [Concomitant]
     Indication: MULTIPLE SCLEROSIS
     Route: 030
     Dates: start: 20061117, end: 20070101
  4. AVONEX [Concomitant]
     Route: 030
     Dates: start: 19960701, end: 20061019

REACTIONS (2)
  - ARTHRALGIA [None]
  - MUSCULOSKELETAL STIFFNESS [None]
